FAERS Safety Report 17734636 (Version 1)
Quarter: 2020Q2

REPORT INFORMATION
  Report Type: Spontaneous
  Country: FR (occurrence: FR)
  Receive Date: 20200501
  Receipt Date: 20200501
  Transmission Date: 20200714
  Serious: Yes (Life-Threatening)
  Sender: FDA-Public Use
  Company Number: FR-MYLANLABS-2020M1042578

PATIENT
  Age: 40 Year
  Sex: Female
  Weight: 72 kg

DRUGS (8)
  1. DAFALGAN CODEINE [Concomitant]
     Active Substance: ACETAMINOPHEN\CODEINE PHOSPHATE
     Dosage: NR
     Route: 048
     Dates: start: 20200127
  2. DOXORUBICINE                       /00330901/ [Suspect]
     Active Substance: DOXORUBICIN
     Indication: THYMOMA
     Dosage: 50 MILLIGRAM/SQ. METER
     Route: 042
     Dates: start: 20200225, end: 20200225
  3. SERESTA [Concomitant]
     Active Substance: OXAZEPAM
     Dosage: 1 DOSAGE FORM
     Route: 048
     Dates: start: 20200127
  4. SOLUPRED                           /00016217/ [Concomitant]
     Active Substance: PREDNISOLONE SODIUM METAZOATE
     Dosage: 180 MILLIGRAM, QD
     Route: 048
     Dates: start: 20200222
  5. CISPLATIN. [Suspect]
     Active Substance: CISPLATIN
     Indication: THYMOMA
     Dosage: 50 MILLIGRAM/SQ. METER
     Route: 042
     Dates: start: 20200225, end: 20200225
  6. MESTINON [Concomitant]
     Active Substance: PYRIDOSTIGMINE BROMIDE
     Dosage: 3 DOSAGE FORM, QD
     Route: 048
     Dates: start: 20200217, end: 20200221
  7. ENDOXAN                            /00021101/ [Suspect]
     Active Substance: CYCLOPHOSPHAMIDE
     Indication: THYMOMA
     Dosage: 500 MILLIGRAM/SQ. METER
     Route: 042
     Dates: start: 20200225, end: 20200225
  8. LEVOTHYROX [Concomitant]
     Active Substance: LEVOTHYROXINE
     Dosage: 1 DOSAGE FORM, QD
     Route: 048

REACTIONS (2)
  - Myasthenia gravis crisis [Recovered/Resolved]
  - Respiratory distress [Recovered/Resolved]

NARRATIVE: CASE EVENT DATE: 20200226
